FAERS Safety Report 20292459 (Version 1)
Quarter: 2022Q1

REPORT INFORMATION
  Report Type: Spontaneous
  Country: US (occurrence: US)
  Receive Date: 20220104
  Receipt Date: 20220104
  Transmission Date: 20220423
  Serious: No
  Sender: FDA-Public Use
  Company Number: US-GALDERMA-US2021016259

PATIENT

DRUGS (3)
  1. DIFFERIN GEL [Suspect]
     Active Substance: ADAPALENE
     Indication: Acne
     Dosage: 1 DOSAGE FORM, BIW AT NIGHT
     Route: 061
  2. AZELAIC ACID [Concomitant]
     Active Substance: AZELAIC ACID
     Indication: Product used for unknown indication
     Dosage: DAILY
     Route: 065
  3. L-ASCORBIC ACID [Concomitant]
     Indication: Product used for unknown indication
     Route: 065

REACTIONS (6)
  - Dry skin [Unknown]
  - Photosensitivity reaction [Unknown]
  - Acne [Unknown]
  - Inappropriate schedule of product administration [Recovered/Resolved]
  - Underdose [Recovered/Resolved]
  - Therapeutic response unexpected [Recovered/Resolved]
